FAERS Safety Report 25358056 (Version 3)
Quarter: 2025Q2

REPORT INFORMATION
  Report Type: Spontaneous
  Country: US (occurrence: US)
  Receive Date: 20250526
  Receipt Date: 20250620
  Transmission Date: 20250716
  Serious: Yes (Other)
  Sender: NOVITIUM PHARMA
  Company Number: US-NOVITIUMPHARMA-2025USNVP01258

PATIENT
  Age: 73 Year
  Sex: Female
  Weight: 89.8 kg

DRUGS (4)
  1. CLORAZEPATE DIPOTASSIUM [Suspect]
     Active Substance: CLORAZEPATE DIPOTASSIUM
     Indication: Product used for unknown indication
     Route: 048
     Dates: start: 202504
  2. GLIPIZIDE [Concomitant]
     Active Substance: GLIPIZIDE
     Indication: Product used for unknown indication
  3. GABAPENTIN [Concomitant]
     Active Substance: GABAPENTIN
     Indication: Product used for unknown indication
  4. MOUNJARO [Concomitant]
     Active Substance: TIRZEPATIDE
     Indication: Product used for unknown indication

REACTIONS (1)
  - Meniere^s disease [Recovered/Resolved]

NARRATIVE: CASE EVENT DATE: 20250401
